FAERS Safety Report 12955890 (Version 2)
Quarter: 2017Q1

REPORT INFORMATION
  Report Type: Spontaneous
  Country: FR (occurrence: FR)
  Receive Date: 20161118
  Receipt Date: 20170117
  Transmission Date: 20170428
  Serious: Yes (Other)
  Sender: FDA-Public Use
  Company Number: FR-PFM-2016-01744

PATIENT
  Age: 65 Year
  Sex: Female

DRUGS (2)
  1. NAVELBINE [Suspect]
     Active Substance: VINORELBINE TARTRATE
     Indication: PRODUCT USED FOR UNKNOWN INDICATION
     Dosage: 25 MG SINGLE, C2 D1
     Route: 041
     Dates: start: 20160922
  2. CISPLATIN ACCORD [Suspect]
     Active Substance: CISPLATIN
     Indication: PRODUCT USED FOR UNKNOWN INDICATION
     Dosage: 235 MG, SINGLE C2 D1
     Route: 041
     Dates: start: 20160922

REACTIONS (4)
  - Capillaritis [Recovering/Resolving]
  - Pyrexia [Recovered/Resolved]
  - Rash [Recovering/Resolving]
  - Toxic skin eruption [Unknown]

NARRATIVE: CASE EVENT DATE: 20160922
